FAERS Safety Report 17669167 (Version 1)
Quarter: 2020Q2

REPORT INFORMATION
  Report Type: Other
  Country: FR (occurrence: FR)
  Receive Date: 20200415
  Receipt Date: 20200415
  Transmission Date: 20200713
  Serious: Yes (Life-Threatening)
  Sender: FDA-Public Use
  Company Number: FR-DENTSPLY-2020SCDP000137

PATIENT
  Age: 69 Year
  Sex: Female

DRUGS (2)
  1. XYLOCAINE WITH ADRENALINE (EPINEPHRINE) [Suspect]
     Active Substance: EPINEPHRINE BITARTRATE\LIDOCAINE HYDROCHLORIDE
     Indication: PAIN
     Dosage: 80 MILLIGRAM
     Route: 042
     Dates: start: 20191221, end: 20191222
  2. SOMATOSTATINE MYLAN [Suspect]
     Active Substance: SOMATOSTATIN
     Indication: HAEMORRHAGE
     Dosage: 6 MILLIGRAM
     Route: 042
     Dates: start: 20191219, end: 20191223

REACTIONS (3)
  - Atrioventricular block [Recovered/Resolved]
  - Bradycardia [Recovered/Resolved]
  - Cardiac arrest [Recovered/Resolved]

NARRATIVE: CASE EVENT DATE: 20191222
